FAERS Safety Report 5250198-0 (Version None)
Quarter: 2007Q1

REPORT INFORMATION
  Report Type: 
  Country: None (occurrence: None)
  Receive Date: 20070228
  Receipt Date: 20060222
  Transmission Date: 20070707
  Serious: No
  Sender: FDA-Public Use
  Company Number: 8014964

PATIENT
  Sex: Female

DRUGS (4)
  1. LAMICTAL [Suspect]
     Indication: DRUG USE FOR UNKNOWN INDICATION
     Route: 048
  2. KEPPRA [Suspect]
     Indication: DRUG USE FOR UNKNOWN INDICATION
     Route: 048
     Dates: start: 20030101, end: 20051101
  3. DEPAKOTE [Concomitant]
     Route: 065
  4. TOPAMAX [Concomitant]
     Route: 065

REACTIONS (1)
  - DIZZINESS [None]
